FAERS Safety Report 6483243-5 (Version None)
Quarter: 2009Q4

REPORT INFORMATION
  Report Type: 
  Country: None (occurrence: None)
  Receive Date: 20091209
  Receipt Date: 20091130
  Transmission Date: 20100525
  Serious: Yes (Hospitalization)
  Sender: FDA-Public Use
  Company Number: FR-BAXTER-2009BH018471

PATIENT
  Age: 71 Year
  Sex: Male

DRUGS (4)
  1. SUPRANE [Suspect]
     Indication: GENERAL ANAESTHESIA
     Route: 055
     Dates: start: 20090401, end: 20090401
  2. ANAESTHETICS, GENERAL [Concomitant]
     Indication: GENERAL ANAESTHESIA
     Route: 065
     Dates: start: 20090101, end: 20090101
  3. NITROUS OXIDE [Concomitant]
     Indication: GENERAL ANAESTHESIA
     Route: 055
     Dates: start: 20090401, end: 20090401
  4. OXYGEN [Concomitant]
     Indication: GENERAL ANAESTHESIA
     Route: 055
     Dates: start: 20090401, end: 20090401

REACTIONS (1)
  - CYTOLYTIC HEPATITIS [None]
